FAERS Safety Report 12392630 (Version 1)
Quarter: 2016Q2

REPORT INFORMATION
  Report Type: Spontaneous
  Country: GB (occurrence: GB)
  Receive Date: 20160523
  Receipt Date: 20160523
  Transmission Date: 20160815
  Serious: Yes (Disabling)
  Sender: FDA-Public Use
  Company Number: GB-SUN PHARMACEUTICAL INDUSTRIES LTD-2016RR-116993

PATIENT
  Age: 67 Year
  Sex: Male
  Weight: 85 kg

DRUGS (1)
  1. ATORVASTATIN [Suspect]
     Active Substance: ATORVASTATIN
     Indication: BLOOD CHOLESTEROL INCREASED
     Dosage: 10 MG, DAILY
     Route: 048
     Dates: start: 20160321, end: 20160412

REACTIONS (4)
  - Ligament pain [Recovering/Resolving]
  - Bone pain [Recovering/Resolving]
  - Myalgia [Recovering/Resolving]
  - Feeling hot [Unknown]

NARRATIVE: CASE EVENT DATE: 20160329
